FAERS Safety Report 5493297-0 (Version None)
Quarter: 2007Q4

REPORT INFORMATION
  Report Type: 
  Country: None (occurrence: None)
  Receive Date: 20071023
  Receipt Date: 20060926
  Transmission Date: 20080405
  Serious: No
  Sender: FDA-Public Use
  Company Number: US-BRISTOL-MYERS SQUIBB COMPANY-13521562

PATIENT
  Age: 49 Year
  Sex: Female

DRUGS (4)
  1. KENALOG-40 [Suspect]
     Indication: ARTHRALGIA
     Dates: start: 20060922, end: 20060922
  2. HYPAQUE [Concomitant]
  3. SENSORCAINE [Concomitant]
  4. LIDOCAINE [Concomitant]

REACTIONS (3)
  - DYSAESTHESIA [None]
  - FLUSHING [None]
  - PRURITUS [None]
